FAERS Safety Report 5744926-5 (Version None)
Quarter: 2008Q2

REPORT INFORMATION
  Report Type: 
  Country: None (occurrence: None)
  Receive Date: 20080521
  Receipt Date: 20080519
  Transmission Date: 20081010
  Serious: Yes (Death, Life-Threatening, Hospitalization)
  Sender: FDA-Public Use
  Company Number: NO-RANBAXY-2008US-15211

PATIENT

DRUGS (10)
  1. CIPROFLOXACIN HCL [Suspect]
     Indication: INFECTION
     Dosage: UNK, UNK
     Route: 048
     Dates: start: 20080311, end: 20080321
  2. XELODA [Suspect]
     Indication: BREAST CANCER
     Dosage: UNK MG, BID
     Route: 048
     Dates: start: 20080126, end: 20080208
  3. SUNITINIB MALATE [Suspect]
     Indication: BREAST CANCER
     Dosage: 37.5 MG, QD
     Route: 048
     Dates: start: 20080126, end: 20080305
  4. OXYCODONE HCL [Concomitant]
     Indication: DRUG USE FOR UNKNOWN INDICATION
     Dosage: UNK
     Route: 048
     Dates: start: 20080311, end: 20080320
  5. ACETAMINOPHEN [Concomitant]
     Indication: DRUG USE FOR UNKNOWN INDICATION
     Dosage: UNK
     Dates: start: 20080226, end: 20080320
  6. IBUPROFEN [Concomitant]
     Indication: DRUG USE FOR UNKNOWN INDICATION
     Dosage: UNK
     Route: 048
     Dates: start: 20080320
  7. IRON [Concomitant]
     Indication: DRUG USE FOR UNKNOWN INDICATION
     Dosage: UNK
     Dates: start: 20080125
  8. VITAMIN B6 [Concomitant]
     Indication: DRUG USE FOR UNKNOWN INDICATION
     Dosage: UNK
     Dates: start: 20080201
  9. MIRTAZAPINE [Concomitant]
     Indication: DRUG USE FOR UNKNOWN INDICATION
     Dosage: UNK
     Dates: start: 20060814
  10. ZOPICLONE [Concomitant]
     Indication: DRUG USE FOR UNKNOWN INDICATION
     Dosage: UNK
     Dates: start: 20060201

REACTIONS (4)
  - DISEASE PROGRESSION [None]
  - EATING DISORDER SYMPTOM [None]
  - MALAISE [None]
  - VOMITING [None]
